FAERS Safety Report 7102543 (Version 5)
Quarter: 2017Q2

REPORT INFORMATION
  Report Type: Report from Study
  Country: FR (occurrence: FR)
  Receive Date: 20090901
  Receipt Date: 20170426
  Transmission Date: 20170830
  Serious: Yes (Death, Hospitalization)
  Sender: FDA-Public Use
  Company Number: FR-PFIZER INC-2009257296

PATIENT
  Age: 49 Year
  Sex: Female
  Weight: 94 kg

DRUGS (14)
  1. LEVOTHYROX [Concomitant]
     Active Substance: LEVOTHYROXINE
     Indication: HYPOTHYROIDISM
     Dosage: 187.5 UG, 1X/DAY
     Dates: start: 2004
  2. RILMENIDINE [Concomitant]
     Active Substance: RILMENIDINE
     Dosage: 1 MG, 1X/DAY
  3. PARIET [Concomitant]
     Active Substance: RABEPRAZOLE SODIUM
     Indication: PROPHYLAXIS AGAINST GASTROINTESTINAL ULCER
     Dosage: 20 UNK, 1X/DAY
     Dates: start: 2008
  4. RIVOTRIL [Concomitant]
     Active Substance: CLONAZEPAM
     Indication: NEUROPATHY PERIPHERAL
     Dosage: ONE PER DAY
     Dates: start: 200904
  5. AMLODIPINE [Concomitant]
     Active Substance: AMLODIPINE BESYLATE
     Dosage: 5 MG, 1X/DAY
  6. ATENOLOL. [Concomitant]
     Active Substance: ATENOLOL
     Dosage: 50 MG, 2X/DAY
  7. INEXIUM [Concomitant]
     Active Substance: ESOMEPRAZOLE
     Dosage: 40 MG, 1X/DAY
  8. SOLUPRED [Concomitant]
     Active Substance: PREDNISOLONE
     Indication: HYPOTHYROIDISM
     Dosage: 20 MG, 1X/DAY
     Dates: start: 2008
  9. AERIUS [Concomitant]
     Active Substance: DESLORATADINE
     Dosage: 5 MG, 1X/DAY
  10. SUTENT [Suspect]
     Active Substance: SUNITINIB MALATE
     Indication: THYROID CANCER
     Dosage: 50 MG/D FOR 4 WEEKS FOLLOWED BY A 2-WEEK REST
     Route: 048
     Dates: end: 20090818
  11. ENDOTELON [Concomitant]
     Active Substance: HERBALS
     Dosage: 150 MG, DAILY
  12. PROPOFAN [Concomitant]
     Active Substance: ACETAMINOPHEN\CAFFEINE\PROPOXYPHENE
     Indication: ANALGESIC THERAPY
     Dosage: 2 TABLETS, 2X/DAY
     Dates: start: 2006
  13. LOW-MOLECULAR-WEIGHT HEPARIN [Concomitant]
     Active Substance: UNSPECIFIED INGREDIENT
     Indication: THROMBOSIS
     Dosage: UNK
  14. AMLODIPINE [Concomitant]
     Active Substance: AMLODIPINE BESYLATE
     Dosage: 10 MG, 1X/DAY

REACTIONS (1)
  - Malignant pleural effusion [Fatal]

NARRATIVE: CASE EVENT DATE: 20090817
